FAERS Safety Report 11339735 (Version 1)
Quarter: 2015Q3

REPORT INFORMATION
  Report Type: Spontaneous
  Country: US (occurrence: None)
  Receive Date: 20150804
  Receipt Date: 20150804
  Transmission Date: 20151125
  Serious: Yes (Life-Threatening, Hospitalization, Disabling)
  Sender: FDA-Public Use
  Company Number: None

PATIENT
  Sex: Male
  Weight: 89.36 kg

DRUGS (10)
  1. RAMIPRIL. [Concomitant]
     Active Substance: RAMIPRIL
  2. LITHIUM CARBONATE TABS 300 MG [Suspect]
     Active Substance: LITHIUM CARBONATE
     Indication: BIPOLAR DISORDER
     Dosage: 5 PILLS/DAY 3 IN AM + 2 @ BEDTIME BY MOUTH
     Route: 048
     Dates: start: 1986
  3. LITHIUM CARBONATE TABS 300 MG [Suspect]
     Active Substance: LITHIUM CARBONATE
     Indication: BIPOLAR I DISORDER
     Dosage: 5 PILLS/DAY 3 IN AM + 2 @ BEDTIME BY MOUTH
     Route: 048
     Dates: start: 1986
  4. SIMVASTATIN. [Concomitant]
     Active Substance: SIMVASTATIN
  5. HUMOLOG INSULIN [Concomitant]
  6. INFUSION KITS + RESERVOIRS [Concomitant]
  7. OMEPRAZOLE DR [Concomitant]
     Active Substance: OMEPRAZOLE
  8. THYROXIN [Concomitant]
     Active Substance: LEVOTHYROXINE
  9. LITHIUM CARBONATE ER TABS 450 MG [Suspect]
     Active Substance: LITHIUM CARBONATE
     Route: 048
  10. TAMSULOSIN HCL [Concomitant]
     Active Substance: TAMSULOSIN

REACTIONS (13)
  - Cognitive disorder [None]
  - Balance disorder [None]
  - Movement disorder [None]
  - Dysgraphia [None]
  - Muscle twitching [None]
  - Gait disturbance [None]
  - Hand fracture [None]
  - Memory impairment [None]
  - Toxicity to various agents [None]
  - Bladder spasm [None]
  - Fall [None]
  - Tremor [None]
  - Dyscalculia [None]

NARRATIVE: CASE EVENT DATE: 2013
